FAERS Safety Report 6244042-2 (Version None)
Quarter: 2009Q2

REPORT INFORMATION
  Report Type: 
  Country: None (occurrence: None)
  Receive Date: 20090625
  Receipt Date: 20080204
  Transmission Date: 20091009
  Serious: Yes (Other)
  Sender: FDA-Public Use
  Company Number: US-ASTRAZENECA-2006UW06037

PATIENT
  Age: 53 Year
  Sex: Female

DRUGS (28)
  1. SEROQUEL [Suspect]
     Indication: DEPRESSION
     Dosage: 25-175 MG
     Route: 048
     Dates: start: 20021121
  2. SEROQUEL [Suspect]
     Indication: ANXIETY
     Dosage: 25-175 MG
     Route: 048
     Dates: start: 20021121
  3. SEROQUEL [Suspect]
     Indication: SLEEP DISORDER
     Dosage: 25-175 MG
     Route: 048
     Dates: start: 20021121
  4. SEROQUEL [Suspect]
     Dosage: 25-100 MG
     Route: 048
     Dates: start: 20020101, end: 20060801
  5. SEROQUEL [Suspect]
     Dosage: 25-100 MG
     Route: 048
     Dates: start: 20020101, end: 20060801
  6. SEROQUEL [Suspect]
     Dosage: 25-100 MG
     Route: 048
     Dates: start: 20020101, end: 20060801
  7. ZYPREXA [Suspect]
     Indication: DEPRESSION
     Dosage: 10 -15 MG
     Dates: start: 20020101, end: 20040701
  8. ZYPREXA [Suspect]
     Indication: ANXIETY
     Dosage: 10 -15 MG
     Dates: start: 20020101, end: 20040701
  9. ZYPREXA [Suspect]
     Indication: SLEEP DISORDER
     Dosage: 10 -15 MG
     Dates: start: 20020101, end: 20040701
  10. ZYPREXA [Suspect]
     Indication: MOOD ALTERED
     Dosage: 10 -15 MG
     Dates: start: 20020101, end: 20040701
  11. ZYPREXA [Suspect]
     Dosage: 5-40 MG
     Dates: start: 20020207
  12. ZYPREXA [Suspect]
     Dosage: 5-40 MG
     Dates: start: 20020207
  13. ZYPREXA [Suspect]
     Dosage: 5-40 MG
     Dates: start: 20020207
  14. ZYPREXA [Suspect]
     Dosage: 5-40 MG
     Dates: start: 20020207
  15. RISPERDAL [Concomitant]
     Indication: DEPRESSION
     Dates: start: 20030301, end: 20030501
  16. RISPERDAL [Concomitant]
     Indication: ANXIETY
     Dates: start: 20030301, end: 20030501
  17. EFFEXOR XR [Concomitant]
     Dosage: 75-375 MG
     Dates: start: 20031211
  18. REMERON [Concomitant]
     Dosage: 15-30 MG
     Dates: start: 20021121
  19. TOPAMAX [Concomitant]
     Dates: start: 20021121
  20. VISTARIL [Concomitant]
     Dosage: 50 MG  TID PRN
     Dates: start: 20040616
  21. BUSPAR [Concomitant]
     Dosage: 20-45 MG
     Dates: start: 20020207
  22. SYNTHROID [Concomitant]
     Dates: start: 20021121
  23. CELEXA [Concomitant]
     Dates: start: 20021123
  24. HYDROCHLOROTHIAZIDE [Concomitant]
     Dates: start: 20021121
  25. MEDROXYPROGESTERONE [Concomitant]
     Dates: start: 20021121
  26. HUMULIN R [Concomitant]
     Dates: start: 20021121
  27. NEURONTIN [Concomitant]
     Dates: start: 20020207
  28. ESKALITH CR [Concomitant]
     Dates: start: 20031211

REACTIONS (2)
  - DIABETES MELLITUS [None]
  - NEUROPATHY PERIPHERAL [None]
